FAERS Safety Report 9938193 (Version 1)
Quarter: 2014Q1

REPORT INFORMATION
  Report Type: Report from Study
  Country: US (occurrence: US)
  Receive Date: 20140303
  Receipt Date: 20140303
  Transmission Date: 20141002
  Serious: No
  Sender: FDA-Public Use
  Company Number: US-ABBVIE-13P-163-1031248-00

PATIENT
  Age: 66 Year
  Sex: Female

DRUGS (10)
  1. HUMIRA [Suspect]
     Indication: RHEUMATOID ARTHRITIS
     Dates: start: 20121207
  2. LANTUS [Concomitant]
     Indication: DIABETES MELLITUS
     Dosage: EVERY EVENING
     Route: 058
  3. HUMALOG [Concomitant]
     Indication: DIABETES MELLITUS
     Dosage: PEN ON A SLIDING SCALE AS NEEDED
  4. METFORMIN [Concomitant]
     Indication: DIABETES MELLITUS
  5. LOSARTAN POTASSIUM [Concomitant]
     Indication: BLOOD PRESSURE INCREASED
     Dosage: 1 TABLET IN THE MORNING
  6. OMEPRAZOLE [Concomitant]
     Indication: GASTROOESOPHAGEAL REFLUX DISEASE
  7. SALINE [Concomitant]
     Indication: PRODUCT USED FOR UNKNOWN INDICATION
  8. IBUPROFEN [Concomitant]
     Indication: ARTHRALGIA
  9. PREDNISONE [Concomitant]
     Indication: ARTHRALGIA
     Dosage: 10MG DAILY
  10. PREDNISONE [Concomitant]
     Dosage: TAPERED DOWN TO 5MG DAILY

REACTIONS (1)
  - Sinusitis [Unknown]
